FAERS Safety Report 24976210 (Version 1)
Quarter: 2025Q1

REPORT INFORMATION
  Report Type: Spontaneous
  Country: CH (occurrence: CH)
  Receive Date: 20250217
  Receipt Date: 20250217
  Transmission Date: 20250409
  Serious: Yes (Death, Hospitalization, Other)
  Sender: BRISTOL-MYERS SQUIBB COMPANY
  Company Number: None

PATIENT
  Age: 61 Year
  Sex: Male
  Weight: 66 kg

DRUGS (20)
  1. ABRAXANE [Suspect]
     Active Substance: PACLITAXEL
     Indication: Pancreatic carcinoma metastatic
     Route: 040
     Dates: start: 20241127, end: 20241206
  2. ATEZOLIZUMAB [Suspect]
     Active Substance: ATEZOLIZUMAB
     Indication: Pancreatic carcinoma metastatic
     Route: 040
     Dates: start: 20241127, end: 20241206
  3. PREDNISOLONE [Suspect]
     Active Substance: PREDNISOLONE
     Indication: Pancreatic carcinoma metastatic
     Dosage: NOT KNOWN INFORMATION ON DOSAGE,DOSAGE, EXACT DATE OF START AND END OF THERAPY
     Route: 048
  4. GEMCITABINE HYDROCHLORIDE [Suspect]
     Active Substance: GEMCITABINE HYDROCHLORIDE
     Indication: Pancreatic carcinoma metastatic
     Route: 040
     Dates: start: 20241127, end: 20241206
  5. ASPIRIN [Concomitant]
     Active Substance: ASPIRIN
     Indication: Pain
     Route: 048
     Dates: start: 20250111, end: 20250116
  6. DOMPERDONE [Concomitant]
     Indication: Nausea
     Route: 048
     Dates: start: 20250114, end: 20250116
  7. INSULIN GLARGINE [Concomitant]
     Active Substance: INSULIN GLARGINE
     Indication: Steroid diabetes
     Route: 048
     Dates: start: 20250116, end: 20250116
  8. IOBITRIDOL [Concomitant]
     Active Substance: IOBITRIDOL
     Indication: Product used for unknown indication
     Route: 040
     Dates: start: 20250110, end: 20250110
  9. LACTULOSE [Concomitant]
     Active Substance: LACTULOSE
     Indication: Product used for unknown indication
     Route: 048
     Dates: start: 20250112, end: 20250114
  10. MAGNESIUM [Concomitant]
     Active Substance: MAGNESIUM
     Indication: Product used for unknown indication
     Route: 048
     Dates: start: 20250113, end: 20250116
  11. MYCOPHENOLIC ACID [Concomitant]
     Active Substance: MYCOPHENOLIC ACID
     Indication: Product used for unknown indication
     Route: 048
     Dates: start: 20250111, end: 20250116
  12. NOVORAPID [Concomitant]
     Active Substance: INSULIN ASPART
     Indication: Steroid diabetes
     Route: 058
     Dates: start: 20250111, end: 20250116
  13. PREDNISOLONE [Concomitant]
     Active Substance: PREDNISOLONE
     Indication: Product used for unknown indication
     Route: 048
     Dates: start: 20250111, end: 20250116
  14. PHYTONADIONE EPOXIDE [Concomitant]
     Active Substance: PHYTONADIONE EPOXIDE
     Indication: Product used for unknown indication
     Dates: start: 20250116, end: 20250116
  15. SULFAMETHOXAZOLE\TRIMETHOPRIM [Concomitant]
     Active Substance: SULFAMETHOXAZOLE\TRIMETHOPRIM
     Indication: Product used for unknown indication
     Route: 048
     Dates: start: 20250113, end: 20250116
  16. POLYETHYLENE GLYCOLS [Concomitant]
     Active Substance: POLYETHYLENE GLYCOLS
     Indication: Product used for unknown indication
     Route: 048
     Dates: start: 20250113, end: 20250114
  17. MORPHINE HYDROCHLORIDE [Concomitant]
     Active Substance: MORPHINE HYDROCHLORIDE
     Indication: Product used for unknown indication
     Route: 040
     Dates: start: 20250116, end: 20250116
  18. GLICEROL [Concomitant]
     Indication: Product used for unknown indication
     Dates: start: 20250111, end: 20250111
  19. SODIUM PICOSULFATE [Concomitant]
     Active Substance: SODIUM PICOSULFATE
     Indication: Product used for unknown indication
     Dates: start: 20250111, end: 20250111
  20. BALDRIANWURZEL [Concomitant]
     Indication: Product used for unknown indication
     Dates: start: 20250115, end: 20250115

REACTIONS (3)
  - Drug-induced liver injury [Fatal]
  - Diabetes mellitus [Recovering/Resolving]
  - Malignant neoplasm progression [Fatal]

NARRATIVE: CASE EVENT DATE: 20241206
